FAERS Safety Report 19394581 (Version 1)
Quarter: 2021Q2

REPORT INFORMATION
  Report Type: Spontaneous
  Country: AU (occurrence: AU)
  Receive Date: 20210609
  Receipt Date: 20210609
  Transmission Date: 20210717
  Serious: Yes (Life-Threatening, Hospitalization)
  Sender: FDA-Public Use
  Company Number: AU-MYLANLABS-2021M1033409

PATIENT
  Age: 55 Year
  Sex: Male

DRUGS (9)
  1. VASOPRESSIN. [Suspect]
     Active Substance: VASOPRESSIN
     Indication: CHEMICAL POISONING
     Dosage: UNK
     Route: 065
  2. NOREPINEPHRINE. [Suspect]
     Active Substance: NOREPINEPHRINE
     Indication: CHOLINERGIC SYNDROME
  3. EPINEPHRINE. [Suspect]
     Active Substance: EPINEPHRINE
     Indication: CHEMICAL POISONING
  4. EPINEPHRINE. [Suspect]
     Active Substance: EPINEPHRINE
     Indication: CHOLINERGIC SYNDROME
  5. VASOPRESSIN. [Suspect]
     Active Substance: VASOPRESSIN
     Indication: CHOLINERGIC SYNDROME
  6. NOREPINEPHRINE. [Suspect]
     Active Substance: NOREPINEPHRINE
     Indication: CHEMICAL POISONING
  7. VASOPRESSIN. [Suspect]
     Active Substance: VASOPRESSIN
     Indication: HYPOTENSION
  8. EPINEPHRINE. [Suspect]
     Active Substance: EPINEPHRINE
     Indication: HYPOTENSION
     Dosage: UNK
     Route: 065
  9. NOREPINEPHRINE. [Suspect]
     Active Substance: NOREPINEPHRINE
     Indication: HYPOTENSION
     Dosage: UNK
     Route: 065

REACTIONS (1)
  - Therapy non-responder [Unknown]
